FAERS Safety Report 10048327 (Version 1)
Quarter: 2014Q1

REPORT INFORMATION
  Report Type: Spontaneous
  Country: CA (occurrence: CA)
  Receive Date: 20140331
  Receipt Date: 20140331
  Transmission Date: 20141002
  Serious: Yes (Hospitalization)
  Sender: FDA-Public Use
  Company Number: CA-GLAXOSMITHKLINE-A1066934A

PATIENT
  Age: 49 Year
  Sex: Female

DRUGS (12)
  1. TYKERB [Suspect]
     Indication: PRODUCT USED FOR UNKNOWN INDICATION
     Dosage: 5TAB PER DAY
     Route: 048
  2. BISOPROLOL [Concomitant]
  3. CALCIUM [Concomitant]
  4. INSULIN [Concomitant]
  5. JANUVIA [Concomitant]
  6. METFORMIN [Concomitant]
  7. NEXIUM [Concomitant]
  8. PROCHLORPERAZINE [Concomitant]
  9. RAMIPRIL [Concomitant]
  10. TYLENOL [Concomitant]
  11. VITAMIN D [Concomitant]
  12. XELODA [Concomitant]

REACTIONS (1)
  - Investigation [Unknown]
